FAERS Safety Report 8071248-2 (Version None)
Quarter: 2012Q1

REPORT INFORMATION
  Report Type: 
  Country: None (occurrence: None)
  Receive Date: 20120125
  Receipt Date: 20120117
  Transmission Date: 20120608
  Serious: Yes (Death, Hospitalization)
  Sender: FDA-Public Use
  Company Number: US-PURDUE-USA-2012-0081124

PATIENT
  Sex: Female

DRUGS (1)
  1. BUTRANS [Suspect]
     Indication: ANALGESIC THERAPY

REACTIONS (2)
  - CARDIAC DISORDER [None]
  - POST PROCEDURAL COMPLICATION [None]
